FAERS Safety Report 7301070-3 (Version None)
Quarter: 2011Q1

REPORT INFORMATION
  Report Type: 
  Country: None (occurrence: None)
  Receive Date: 20110218
  Receipt Date: 20110210
  Transmission Date: 20110831
  Serious: Yes (Other)
  Sender: FDA-Public Use
  Company Number: DE-AMGEN-DEUSP2011008074

PATIENT
  Age: 38 Year
  Sex: Male

DRUGS (4)
  1. ARANESP [Suspect]
     Indication: DIALYSIS
     Dosage: UNK
     Dates: start: 20101101
  2. ENDOXAN                            /00021101/ [Concomitant]
  3. RETACRIT [Concomitant]
  4. ARANESP [Suspect]
     Dosage: 40 A?G, 3 TIMES/WK
     Dates: start: 20110101

REACTIONS (2)
  - HAEMOGLOBIN DECREASED [None]
  - BONE MARROW DISORDER [None]
